FAERS Safety Report 4472760-5 (Version None)
Quarter: 2004Q4

REPORT INFORMATION
  Report Type: 
  Country: None (occurrence: None)
  Receive Date: 20041012
  Receipt Date: 20041012
  Transmission Date: 20050328
  Serious: Yes (Other)
  Sender: FDA-Public Use
  Company Number: None

PATIENT
  Sex: Female
  Weight: 47.6277 kg

DRUGS (2)
  1. REMICADE [Suspect]
     Indication: CROHN'S DISEASE
     Dosage: EVERY 8 WKS INTRAVENOUS
     Route: 042
     Dates: start: 20010801, end: 20040331
  2. REMICADE [Suspect]
     Dosage: EVERY 6 WKS INTRAVENOUS
     Route: 042

REACTIONS (9)
  - ACTIVITIES OF DAILY LIVING IMPAIRED [None]
  - ANXIETY [None]
  - ARTHRALGIA [None]
  - DEPRESSION [None]
  - NERVOUS SYSTEM DISORDER [None]
  - PAIN [None]
  - SENSORY DISTURBANCE [None]
  - SKIN DISORDER [None]
  - TEMPERATURE INTOLERANCE [None]
